FAERS Safety Report 7267970-8 (Version None)
Quarter: 2011Q1

REPORT INFORMATION
  Report Type: 
  Country: None (occurrence: None)
  Receive Date: 20110201
  Receipt Date: 20110129
  Transmission Date: 20110831
  Serious: Yes (Hospitalization, Other)
  Sender: FDA-Public Use
  Company Number: US-PFIZER INC-2010053909

PATIENT
  Sex: Female
  Weight: 74 kg

DRUGS (21)
  1. IBUPROFEN [Suspect]
     Indication: RHEUMATOID ARTHRITIS
  2. NAPROXEN [Suspect]
  3. BLINDED NO SUBJECT DRUG [Suspect]
     Indication: RHEUMATOID ARTHRITIS
  4. FLAGYL [Suspect]
     Dosage: 1500 MG, UNK
     Route: 048
     Dates: start: 20100408, end: 20100417
  5. CIPRO [Suspect]
     Indication: DIVERTICULITIS
     Dosage: 500 MG, 2X/DAY
     Route: 048
     Dates: start: 20100408, end: 20100417
  6. NEXIUM [Concomitant]
     Indication: PROPHYLAXIS AGAINST GASTROINTESTINAL ULCER
     Dosage: 20 OR 40 MG DAILY
     Route: 048
     Dates: start: 20080424
  7. NAPROXEN [Suspect]
     Indication: OSTEOARTHRITIS
     Dosage: UNK
     Route: 048
     Dates: start: 20080424
  8. BLINDED NO SUBJECT DRUG [Suspect]
     Indication: OSTEOARTHRITIS
     Dosage: UNK
     Route: 048
     Dates: start: 20080424
  9. BLINDED PLACEBO [Suspect]
     Indication: RHEUMATOID ARTHRITIS
  10. NAPROXEN [Suspect]
     Dosage: UNK
     Route: 048
     Dates: start: 20080424
  11. NEXIUM [Concomitant]
     Dosage: UNK
     Dates: start: 20100424
  12. CELECOXIB [Suspect]
     Indication: OSTEOARTHRITIS
     Dosage: UNK
     Route: 048
     Dates: start: 20080424
  13. BLINDED PLACEBO [Suspect]
     Indication: OSTEOARTHRITIS
     Dosage: UNK
     Route: 048
     Dates: start: 20080424
  14. CIPRO [Suspect]
     Dosage: 100 MG, UNK
     Route: 048
     Dates: start: 20100408, end: 20100417
  15. IBUPROFEN [Suspect]
  16. VANCOMYCIN [Concomitant]
     Indication: COLITIS
     Dosage: UNK
     Route: 048
     Dates: start: 20100425, end: 20100508
  17. IBUPROFEN [Suspect]
     Indication: OSTEOARTHRITIS
     Dosage: UNK
     Route: 048
     Dates: start: 20080424
  18. IBUPROFEN [Suspect]
     Dosage: UNK
     Route: 048
     Dates: start: 20080424
  19. NAPROXEN [Suspect]
     Indication: RHEUMATOID ARTHRITIS
  20. CELECOXIB [Suspect]
     Indication: RHEUMATOID ARTHRITIS
  21. FLAGYL [Suspect]
     Indication: DIVERTICULITIS
     Dosage: 500 MG, 3X/DAY
     Route: 048
     Dates: start: 20100408, end: 20100417

REACTIONS (1)
  - COLITIS [None]
